FAERS Safety Report 8978219 (Version 1)
Quarter: 2012Q4

REPORT INFORMATION
  Report Type: Spontaneous
  Country: US (occurrence: None)
  Receive Date: 20121218
  Receipt Date: 20121218
  Transmission Date: 20130627
  Serious: No
  Sender: FDA-Public Use
  Company Number: None

PATIENT
  Age: 61 Year
  Sex: Female
  Weight: 56.25 kg

DRUGS (1)
  1. BUPROPRION XL 150MG TAB MFG: GLOBAL [Suspect]
     Indication: DEPRESSION
     Route: 048
     Dates: start: 20121101, end: 20121116

REACTIONS (6)
  - Product physical issue [None]
  - Depressed mood [None]
  - Irritability [None]
  - Abdominal discomfort [None]
  - Depression [None]
  - Product substitution issue [None]
